FAERS Safety Report 17945308 (Version 1)
Quarter: 2020Q2

REPORT INFORMATION
  Report Type: Spontaneous
  Country: US (occurrence: US)
  Receive Date: 20200625
  Receipt Date: 20200625
  Transmission Date: 20200714
  Serious: Yes (Hospitalization)
  Sender: FDA-Public Use
  Company Number: US-ROCHE-2613300

PATIENT
  Age: 44 Year
  Sex: Male

DRUGS (3)
  1. ACTEMRA [Suspect]
     Active Substance: TOCILIZUMAB
     Indication: COVID-19
     Route: 065
  2. OCREVUS [Suspect]
     Active Substance: OCRELIZUMAB
     Dosage: OCREVUS START: HALF DOSES
     Route: 042
     Dates: start: 201802
  3. OCREVUS [Suspect]
     Active Substance: OCRELIZUMAB
     Indication: RELAPSING MULTIPLE SCLEROSIS
     Dosage: EVERY 5 MONTHS
     Route: 042
     Dates: start: 20171114

REACTIONS (3)
  - COVID-19 [Unknown]
  - Off label use [Unknown]
  - Intentional product use issue [Unknown]

NARRATIVE: CASE EVENT DATE: 20200429
